FAERS Safety Report 25544971 (Version 1)
Quarter: 2025Q3

REPORT INFORMATION
  Report Type: Spontaneous
  Country: US (occurrence: US)
  Receive Date: 20250711
  Receipt Date: 20250711
  Transmission Date: 20251020
  Serious: Yes (Other)
  Sender: GALPHARM INTERNATIONAL
  Company Number: US-PERRIGO-25US008461

PATIENT
  Sex: Male

DRUGS (2)
  1. CETIRIZINE HYDROCHLORIDE [Suspect]
     Active Substance: CETIRIZINE HYDROCHLORIDE
     Indication: Perennial allergy
     Dosage: 10 MG, QD
     Route: 048
     Dates: start: 20250103, end: 20250110
  2. CETIRIZINE HYDROCHLORIDE [Suspect]
     Active Substance: CETIRIZINE HYDROCHLORIDE
     Indication: Sinus congestion
     Dosage: 10 MG, QD
     Route: 048
     Dates: start: 20250611, end: 20250702

REACTIONS (4)
  - Urinary retention [Not Recovered/Not Resolved]
  - Dry eye [Unknown]
  - Vision blurred [Unknown]
  - Deposit eye [Unknown]

NARRATIVE: CASE EVENT DATE: 20250114
